FAERS Safety Report 6913178-2 (Version None)
Quarter: 2010Q3

REPORT INFORMATION
  Report Type: 
  Country: None (occurrence: None)
  Receive Date: 20100806
  Receipt Date: 20100315
  Transmission Date: 20110219
  Serious: Yes (Hospitalization, Other)
  Sender: FDA-Public Use
  Company Number: US-PFIZER INC-2008065514

PATIENT
  Sex: Male
  Weight: 12 kg

DRUGS (7)
  1. DILANTIN-125 [Suspect]
     Indication: CONVULSION
     Dosage: 25 MG, 3X/DAY
     Route: 048
     Dates: start: 19981029, end: 19981111
  2. DILANTIN-125 [Suspect]
     Dosage: 10 MG, UNK
     Dates: start: 19981109
  3. CEFTRIAXONE [Concomitant]
  4. CHLORAL HYDRATE [Concomitant]
  5. ACETAMINOPHEN [Concomitant]
  6. ACETAMINOPHEN [Concomitant]
  7. SODIUM CHLORIDE [Concomitant]

REACTIONS (2)
  - STEVENS-JOHNSON SYNDROME [None]
  - TOXIC EPIDERMAL NECROLYSIS [None]
